FAERS Safety Report 8181883-9 (Version None)
Quarter: 2012Q1

REPORT INFORMATION
  Report Type: 
  Country: None (occurrence: None)
  Receive Date: 20120302
  Receipt Date: 20120219
  Transmission Date: 20120608
  Serious: Yes (Death, Other)
  Sender: FDA-Public Use
  Company Number: AU-ROCHE-1042411

PATIENT
  Age: 58 Year
  Sex: Male

DRUGS (1)
  1. MABTHERA [Suspect]
     Indication: B-CELL LYMPHOMA

REACTIONS (6)
  - PARAPLEGIA [None]
  - URINARY RETENTION [None]
  - DISEASE PROGRESSION [None]
  - BACK PAIN [None]
  - NEUROMYOPATHY [None]
  - WEIGHT DECREASED [None]
